FAERS Safety Report 8236710-8 (Version None)
Quarter: 2012Q1

REPORT INFORMATION
  Report Type: 
  Country: None (occurrence: None)
  Receive Date: 20120326
  Receipt Date: 20120326
  Transmission Date: 20120608
  Serious: Yes (Other)
  Sender: FDA-Public Use
  Company Number: None

PATIENT
  Age: 14 Year
  Sex: Female
  Weight: 60 kg

DRUGS (3)
  1. ARAVA [Suspect]
     Indication: JUVENILE ARTHRITIS
     Dosage: 20 MG DAILY PO
     Route: 048
     Dates: start: 20101001, end: 20120301
  2. ORENCIA [Concomitant]
  3. PIROXICAM [Concomitant]

REACTIONS (1)
  - EOSINOPHILIA [None]
